FAERS Safety Report 8462015-6 (Version None)
Quarter: 2012Q2

REPORT INFORMATION
  Report Type: 
  Country: None (occurrence: None)
  Receive Date: 20120625
  Receipt Date: 20120618
  Transmission Date: 20120825
  Serious: Yes (Hospitalization)
  Sender: FDA-Public Use
  Company Number: IT-SANOFI-AVENTIS-2012SA043631

PATIENT
  Age: 69 Year
  Sex: Male

DRUGS (1)
  1. CABAZITAXEL [Suspect]
     Route: 065

REACTIONS (3)
  - EPISTAXIS [None]
  - DISSEMINATED INTRAVASCULAR COAGULATION [None]
  - THROMBOCYTOPENIA [None]
